FAERS Safety Report 21720050 (Version 1)
Quarter: 2022Q4

REPORT INFORMATION
  Report Type: Spontaneous
  Country: US (occurrence: US)
  Receive Date: 20221213
  Receipt Date: 20221213
  Transmission Date: 20230113
  Serious: Yes (Hospitalization, Other)
  Sender: FDA-Public Use
  Company Number: US-drreddys-SPO/USA/22/0158087

PATIENT
  Age: 49 Year
  Sex: Male

DRUGS (4)
  1. HEPARIN SODIUM [Suspect]
     Active Substance: HEPARIN SODIUM
     Indication: Product used for unknown indication
     Dates: start: 2022
  2. OMEPRAZOLE [Concomitant]
     Active Substance: OMEPRAZOLE
     Indication: Impaired gastric emptying
     Dates: start: 202201
  3. METRONIDAZOLE [Concomitant]
     Active Substance: METRONIDAZOLE
     Indication: Product used for unknown indication
     Dates: start: 2022
  4. CEFTRIAXONE [Concomitant]
     Active Substance: CEFTRIAXONE
     Indication: Product used for unknown indication
     Dates: start: 2022

REACTIONS (1)
  - Heparin-induced thrombocytopenia [Unknown]

NARRATIVE: CASE EVENT DATE: 20220101
